FAERS Safety Report 8828805 (Version 2)
Quarter: 2012Q4

REPORT INFORMATION
  Report Type: 
  Country: US (occurrence: US)
  Receive Date: 20121008
  Receipt Date: 20121023
  Transmission Date: 20130627
  Serious: No
  Sender: FDA-Public Use
  Company Number: US-PFIZER INC-2012245471

PATIENT
  Age: 58 Year
  Sex: Female
  Weight: 41.7 kg

DRUGS (6)
  1. EFFEXOR XR [Suspect]
     Indication: DEPRESSION
     Dosage: 225 mg, 1x/day
     Route: 048
     Dates: start: 2009, end: 20120927
  2. EFFEXOR XR [Suspect]
     Indication: MENOPAUSAL SYMPTOMS
  3. DYAZIDE [Concomitant]
     Dosage: UNK
  4. FOSAMAX [Concomitant]
     Dosage: UNK
  5. CRESTOR [Concomitant]
     Dosage: UNK
  6. ASPIRIN [Concomitant]
     Dosage: UNK

REACTIONS (4)
  - Decreased appetite [Unknown]
  - Malaise [Unknown]
  - Somnolence [Unknown]
  - Tremor [Unknown]
